FAERS Safety Report 8381338-2 (Version None)
Quarter: 2012Q2

REPORT INFORMATION
  Report Type: 
  Country: None (occurrence: None)
  Receive Date: 20120523
  Receipt Date: 20120511
  Transmission Date: 20120825
  Serious: Yes (Death)
  Sender: FDA-Public Use
  Company Number: RO-PFIZER INC-2012115315

PATIENT
  Age: 73 Year
  Sex: Male
  Weight: 51 kg

DRUGS (2)
  1. TEMSIROLIMUS [Suspect]
     Indication: MANTLE CELL LYMPHOMA
     Dosage: 50 MG, UNK
     Route: 042
     Dates: start: 20111129, end: 20120110
  2. DESIPRAMIDE HCL [Suspect]
     Indication: MANTLE CELL LYMPHOMA
     Dosage: 50 MG, WEEKLY, FOR TWO WEEKS
     Route: 048
     Dates: start: 20111129, end: 20111129

REACTIONS (2)
  - NON-HODGKIN'S LYMPHOMA [None]
  - DISEASE PROGRESSION [None]
